FAERS Safety Report 16141782 (Version 1)
Quarter: 2019Q2

REPORT INFORMATION
  Report Type: Spontaneous
  Country: IT (occurrence: IT)
  Receive Date: 20190401
  Receipt Date: 20190401
  Transmission Date: 20190711
  Serious: Yes (Hospitalization)
  Sender: FDA-Public Use
  Company Number: IT-MYLANLABS-2019M1028605

PATIENT
  Age: 87 Year
  Sex: Male

DRUGS (9)
  1. PRAVASELECT [Concomitant]
     Active Substance: PRAVASTATIN SODIUM
     Dosage: 0.5 DOSAGE FORM
     Route: 048
  2. TICLOPIDINA                        /00543201/ [Concomitant]
     Dosage: 2 DOSAGE FORM
     Route: 048
  3. AVODART [Concomitant]
     Active Substance: DUTASTERIDE
     Dosage: UNK
  4. FUROSEMIDE. [Suspect]
     Active Substance: FUROSEMIDE
     Indication: PRODUCT USED FOR UNKNOWN INDICATION
     Dosage: 250 MILLIGRAM, QD
     Route: 048
     Dates: start: 20080430, end: 20080504
  5. TAVOR (LORAZEPAM) [Concomitant]
     Active Substance: LORAZEPAM
     Dosage: UNK
  6. PANTORC [Concomitant]
     Active Substance: PANTOPRAZOLE SODIUM
     Dosage: UNK
  7. PERIDON                            /00498201/ [Concomitant]
     Active Substance: DOMPERIDONE
     Dosage: 2 DOSAGE FORM
     Route: 048
  8. MINITRAN [Concomitant]
     Active Substance: NITROGLYCERIN
     Dosage: UNK
  9. TAREG [Concomitant]
     Active Substance: VALSARTAN
     Dosage: 160 MILLIGRAM
     Route: 048

REACTIONS (3)
  - Orthostatic hypotension [Recovered/Resolved]
  - Hypovolaemia [Recovered/Resolved]
  - Renal failure [Recovered/Resolved]

NARRATIVE: CASE EVENT DATE: 20080501
